FAERS Safety Report 25817168 (Version 4)
Quarter: 2025Q4

REPORT INFORMATION
  Report Type: Spontaneous
  Country: CA (occurrence: CA)
  Receive Date: 20250918
  Receipt Date: 20251203
  Transmission Date: 20260118
  Serious: Yes (Other)
  Sender: PFIZER
  Company Number: CA-PFIZER INC-202500052028

PATIENT
  Age: 73 Year
  Sex: Male
  Weight: 66 kg

DRUGS (3)
  1. IXIFI [Suspect]
     Active Substance: INFLIXIMAB-QBTX
     Indication: Crohn^s disease
     Dosage: 10 MG/KG, EVERY 8 WEEKS
     Route: 042
     Dates: start: 20250522
  2. IXIFI [Suspect]
     Active Substance: INFLIXIMAB-QBTX
     Dosage: 660 MG, AFTER 9 WEEKS AND 6 DAYS (10 MG/KG, EVERY 8 WEEKS)
     Route: 042
     Dates: start: 20250730
  3. IXIFI [Suspect]
     Active Substance: INFLIXIMAB-QBTX
     Dosage: 350 MG, AFTER 16 WEEKS AND 5 DAYS(10 MG/KG,EVERY 8 WEEKS)
     Route: 042
     Dates: start: 20251124

REACTIONS (3)
  - Brain neoplasm [Recovered/Resolved]
  - Blood pressure systolic increased [Unknown]
  - Inappropriate schedule of product administration [Unknown]

NARRATIVE: CASE EVENT DATE: 20250101
